FAERS Safety Report 25556605 (Version 2)
Quarter: 2025Q3

REPORT INFORMATION
  Report Type: Spontaneous
  Country: US (occurrence: US)
  Receive Date: 20250715
  Receipt Date: 20250721
  Transmission Date: 20251021
  Serious: Yes (Death, Life-Threatening, Other)
  Sender: PFIZER
  Company Number: US-PFIZER INC-PV202500082471

PATIENT
  Age: 19 Year
  Sex: Female

DRUGS (6)
  1. SOLU-MEDROL [Suspect]
     Active Substance: METHYLPREDNISOLONE SODIUM SUCCINATE
     Indication: Lupus encephalitis
     Dosage: UNK UNK, DAILY
  2. PREDNISONE [Suspect]
     Active Substance: PREDNISONE
     Indication: Lupus nephritis
  3. MYCOPHENOLATE MOFETIL [Suspect]
     Active Substance: MYCOPHENOLATE MOFETIL
     Indication: Lupus nephritis
  4. SULFAMETHOXAZOLE\TRIMETHOPRIM [Concomitant]
     Active Substance: SULFAMETHOXAZOLE\TRIMETHOPRIM
     Indication: Lupus nephritis
  5. SULFAMETHOXAZOLE\TRIMETHOPRIM [Concomitant]
     Active Substance: SULFAMETHOXAZOLE\TRIMETHOPRIM
     Indication: Prophylaxis
  6. HEPARIN [Concomitant]
     Active Substance: HEPARIN SODIUM
     Indication: Venous thrombosis
     Dosage: UNK UNK, DAILY
     Route: 041

REACTIONS (1)
  - Disseminated cryptococcosis [Fatal]
